FAERS Safety Report 9356766 (Version 1)
Quarter: 2013Q2

REPORT INFORMATION
  Report Type: Report from Study
  Country: JP (occurrence: JP)
  Receive Date: 20130619
  Receipt Date: 20130619
  Transmission Date: 20140414
  Serious: Yes (Other)
  Sender: FDA-Public Use
  Company Number: JP-009507513-1305JPN007714

PATIENT
  Age: 66 Year
  Sex: Female

DRUGS (1)
  1. TEMODAL INFUSION 100MG [Suspect]
     Dosage: 75 MG/M2, QD
     Route: 041
     Dates: start: 20110725, end: 20110823

REACTIONS (3)
  - Pyrexia [Recovering/Resolving]
  - Hepatic function abnormal [Recovering/Resolving]
  - Pancreatitis chronic [Recovering/Resolving]
